FAERS Safety Report 16181579 (Version 1)
Quarter: 2019Q2

REPORT INFORMATION
  Report Type: Spontaneous
  Country: ES (occurrence: ES)
  Receive Date: 20190410
  Receipt Date: 20190410
  Transmission Date: 20190711
  Serious: Yes (Other)
  Sender: FDA-Public Use
  Company Number: ES-MYLANLABS-2019M1033032

PATIENT
  Age: 86 Year
  Sex: Female
  Weight: 56 kg

DRUGS (4)
  1. CLOMETIAZOL [Interacting]
     Active Substance: CLOMETHIAZOLE
     Indication: AGITATION
     Dosage: 192 MILLIGRAM, QD
     Route: 048
     Dates: start: 20180430, end: 20180502
  2. DIAZEPAM. [Interacting]
     Active Substance: DIAZEPAM
     Indication: ANXIETY
     Dosage: 2.5 MILLIGRAM, Q2D
     Route: 048
     Dates: start: 20180101, end: 20180503
  3. SERTRALINA                         /01011401/ [Concomitant]
     Active Substance: SERTRALINE HYDROCHLORIDE
     Indication: DEPRESSION
     Dosage: 50 MILLIGRAM
     Route: 048
     Dates: start: 20180416, end: 20180427
  4. RISPERIDONE. [Suspect]
     Active Substance: RISPERIDONE
     Indication: PSYCHOTIC DISORDER
     Dosage: 1 MILLIGRAM, QD
     Route: 048
     Dates: start: 20180416, end: 20180502

REACTIONS (3)
  - Depressed level of consciousness [Recovered/Resolved]
  - Drug interaction [Unknown]
  - Leukopenia [Recovered/Resolved]

NARRATIVE: CASE EVENT DATE: 2018
